FAERS Safety Report 24061505 (Version 1)
Quarter: 2024Q3

REPORT INFORMATION
  Report Type: Spontaneous
  Country: US (occurrence: US)
  Receive Date: 20240708
  Receipt Date: 20240708
  Transmission Date: 20241017
  Serious: No
  Sender: COVIS PHARMA
  Company Number: US-Covis Pharma GmbH-2024COV00748

PATIENT
  Age: 5 Year
  Sex: Male

DRUGS (1)
  1. ALVESCO [Suspect]
     Active Substance: CICLESONIDE
     Indication: Asthma
     Route: 055

REACTIONS (5)
  - Dyspnoea [Recovered/Resolved]
  - Cough [Recovered/Resolved]
  - Product dose omission issue [Recovered/Resolved]
  - Incorrect dose administered by device [Recovered/Resolved]
  - Off label use [Unknown]
